FAERS Safety Report 16938950 (Version 1)
Quarter: 2019Q4

REPORT INFORMATION
  Report Type: Report from Study
  Country: GR (occurrence: GR)
  Receive Date: 20191020
  Receipt Date: 20191020
  Transmission Date: 20200122
  Serious: Yes (Hospitalization)
  Sender: FDA-Public Use
  Company Number: PHHO2019GR007562

PATIENT
  Age: 51 Year
  Sex: Male
  Weight: 101 kg

DRUGS (7)
  1. BLINDED AIN457 [Suspect]
     Active Substance: SECUKINUMAB
     Indication: HIDRADENITIS
     Dosage: CODE NOT BROKEN
     Route: 058
     Dates: start: 20190624
  2. BLINDED AIN457 [Suspect]
     Active Substance: SECUKINUMAB
     Indication: HIDRADENITIS
     Dosage: CODE NOT BROKEN
     Route: 058
     Dates: start: 20190624
  3. LOBIVON [Concomitant]
     Active Substance: NEBIVOLOL HYDROCHLORIDE
     Indication: HYPERTENSION
     Dosage: UNK
     Route: 065
     Dates: start: 20090101
  4. BLINDED PLACEBO [Suspect]
     Active Substance: INVESTIGATIONAL PRODUCT
     Indication: HIDRADENITIS
     Dosage: CODE NOT BROKEN
     Route: 058
     Dates: start: 20190624
  5. DEPON [Concomitant]
     Active Substance: ACETAMINOPHEN
     Indication: PROPHYLAXIS
     Dosage: UNK
     Route: 065
     Dates: start: 20190704, end: 20190704
  6. DEPON [Concomitant]
     Active Substance: ACETAMINOPHEN
     Indication: ANKYLOSING SPONDYLITIS
     Dosage: UNK
     Route: 065
     Dates: start: 20190705, end: 20190708
  7. BLINDED NO TREATMENT RECEIVED [Suspect]
     Active Substance: INVESTIGATIONAL PRODUCT
     Indication: HIDRADENITIS
     Dosage: CODE NOT BROKEN
     Route: 058
     Dates: start: 20190624

REACTIONS (1)
  - Hidradenitis [Recovered/Resolved]

NARRATIVE: CASE EVENT DATE: 20190718
